FAERS Safety Report 8747418 (Version 2)
Quarter: 2012Q4

REPORT INFORMATION
  Report Type: Report from Study
  Country: CA (occurrence: CA)
  Receive Date: 20120827
  Receipt Date: 20120919
  Transmission Date: 20130627
  Serious: Yes (Hospitalization, Other)
  Sender: FDA-Public Use
  Company Number: CA-JNJFOC-20120810481

PATIENT
  Sex: Male
  Weight: 71.7 kg

DRUGS (5)
  1. REMICADE [Suspect]
     Indication: RHEUMATOID ARTHRITIS
     Dosage: had his 4th infusion
     Route: 042
     Dates: start: 20120525
  2. REMICADE [Suspect]
     Indication: RHEUMATOID ARTHRITIS
     Route: 042
     Dates: start: 20120220
  3. METHOTREXATE [Concomitant]
     Route: 058
  4. PREDNISONE [Concomitant]
     Route: 048
  5. NAPROXEN [Concomitant]
     Route: 065

REACTIONS (1)
  - Benign prostatic hyperplasia [Recovered/Resolved]
